FAERS Safety Report 5021796-4 (Version None)
Quarter: 2006Q2

REPORT INFORMATION
  Report Type: 
  Country: None (occurrence: None)
  Receive Date: 20060605
  Receipt Date: 20060518
  Transmission Date: 20061013
  Serious: Yes (Death, Hospitalization)
  Sender: FDA-Public Use
  Company Number: M-06-0417

PATIENT
  Sex: Male

DRUGS (2)
  1. AMIODARONE, UNK STRENGTH, UNK MFR [Suspect]
     Indication: VENTRICULAR TACHYCARDIA
     Dates: start: 20031201, end: 20031207
  2. AMIODARONE HCL [Suspect]
     Indication: VENTRICULAR TACHYCARDIA
     Dates: start: 20020601, end: 20031001

REACTIONS (8)
  - ATRIAL FLUTTER [None]
  - BRADYCARDIA [None]
  - CARDIAC FAILURE CONGESTIVE [None]
  - DRUG TOXICITY [None]
  - IMMUNE SYSTEM DISORDER [None]
  - PULMONARY TOXICITY [None]
  - SEPSIS [None]
  - THROMBOCYTOPENIA [None]
